FAERS Safety Report 24388980 (Version 3)
Quarter: 2024Q4

REPORT INFORMATION
  Report Type: Report from Study
  Country: US (occurrence: US)
  Receive Date: 20241002
  Receipt Date: 20241031
  Transmission Date: 20250115
  Serious: No
  Sender: DAIICHI
  Company Number: US-DAIICHI SANKYO, INC.-DS-2024-101562-USAA

PATIENT
  Age: 41 Year
  Sex: Female

DRUGS (3)
  1. PEXIDARTINIB [Suspect]
     Active Substance: PEXIDARTINIB
     Indication: Bone neoplasm
     Dosage: 250 MG, BID
     Route: 048
     Dates: start: 20240917
  2. COMPAZINE [Suspect]
     Active Substance: PROCHLORPERAZINE MALEATE
     Indication: Product used for unknown indication
     Dosage: UNK
     Route: 065
  3. ZOFRAN [Suspect]
     Active Substance: ONDANSETRON HYDROCHLORIDE
     Indication: Product used for unknown indication
     Dosage: UNK
     Route: 065

REACTIONS (12)
  - Adverse drug reaction [Unknown]
  - Iron deficiency [Unknown]
  - Joint swelling [Recovering/Resolving]
  - Hypersomnia [Unknown]
  - Bronchitis [Unknown]
  - Insomnia [Unknown]
  - Migraine [Unknown]
  - Ageusia [Unknown]
  - Headache [Unknown]
  - Pruritus [Unknown]
  - Fatigue [Recovering/Resolving]
  - Hepatic enzyme increased [Unknown]

NARRATIVE: CASE EVENT DATE: 20240901
